FAERS Safety Report 12966249 (Version 1)
Quarter: 2016Q4

REPORT INFORMATION
  Report Type: Spontaneous
  Country: US (occurrence: US)
  Receive Date: 20161118
  Receipt Date: 20161118
  Transmission Date: 20170207
  Serious: Yes (Hospitalization)
  Sender: FDA-Public Use
  Company Number: None

PATIENT
  Age: 62 Year
  Sex: Female

DRUGS (8)
  1. NASONEX [Concomitant]
     Active Substance: MOMETASONE FUROATE
  2. XELJANZ XR [Suspect]
     Active Substance: TOFACITINIB CITRATE
     Indication: RHEUMATOID ARTHRITIS
     Route: 048
     Dates: start: 20150511
  3. SULFASALAZINE DELAYED-RELEASE [Concomitant]
     Active Substance: SULFASALAZINE
  4. DETROL LA [Concomitant]
     Active Substance: TOLTERODINE TARTRATE
  5. ESOMEPRA MAG [Concomitant]
  6. CELEBREX [Concomitant]
     Active Substance: CELECOXIB
  7. NEXIUM [Concomitant]
     Active Substance: ESOMEPRAZOLE MAGNESIUM
  8. VITAMIN D [Concomitant]
     Active Substance: CHOLECALCIFEROL

REACTIONS (3)
  - Animal bite [None]
  - Influenza [None]
  - Infection [None]
